FAERS Safety Report 6401297-9 (Version None)
Quarter: 2009Q4

REPORT INFORMATION
  Report Type: 
  Country: None (occurrence: None)
  Receive Date: 20091015
  Receipt Date: 20091007
  Transmission Date: 20100525
  Serious: Yes (Death, Other)
  Sender: FDA-Public Use
  Company Number: PHHY2009IT43366

PATIENT
  Age: 57 Year
  Sex: Female

DRUGS (6)
  1. IMATINIB MESYLATE [Suspect]
     Indication: ACUTE LYMPHOCYTIC LEUKAEMIA
     Dosage: 600 MG/DAY
  2. VINCRISTINE [Concomitant]
     Dosage: UNK
  3. DAUNORUBICIN HCL [Concomitant]
  4. PREDNISONE [Concomitant]
  5. METHOTREXATE [Concomitant]
  6. DASATINIB [Concomitant]
     Dosage: 70 MG, BID

REACTIONS (3)
  - ACUTE RESPIRATORY DISTRESS SYNDROME [None]
  - GENE MUTATION IDENTIFICATION TEST [None]
  - MALIGNANT NEOPLASM PROGRESSION [None]
